FAERS Safety Report 4268693-X (Version None)
Quarter: 2004Q1

REPORT INFORMATION
  Report Type: 
  Country: None (occurrence: None)
  Receive Date: 20040108
  Receipt Date: 20031230
  Transmission Date: 20041129
  Serious: Yes (Hospitalization)
  Sender: FDA-Public Use
  Company Number: 2003UW17264

PATIENT
  Sex: Female

DRUGS (2)
  1. RHINOCORT [Suspect]
     Indication: HYPERSENSITIVITY
     Dates: start: 20030501, end: 20030101
  2. RHINOCORT [Suspect]
     Indication: RHINITIS
     Dates: start: 20030501, end: 20030101

REACTIONS (4)
  - CHEST PAIN [None]
  - GASTRIC ULCER [None]
  - OESOPHAGEAL SPASM [None]
  - PAIN IN JAW [None]
